FAERS Safety Report 17157965 (Version 1)
Quarter: 2019Q4

REPORT INFORMATION
  Report Type: Spontaneous
  Country: FR (occurrence: FR)
  Receive Date: 20191216
  Receipt Date: 20191216
  Transmission Date: 20200122
  Serious: Yes (Hospitalization)
  Sender: FDA-Public Use
  Company Number: FR-ABBVIE-19K-056-3191501-00

PATIENT
  Age: 55 Year
  Sex: Male

DRUGS (8)
  1. DARUNAVIR [Suspect]
     Active Substance: DARUNAVIR
     Indication: HIV INFECTION
     Route: 048
     Dates: start: 20161011
  2. QUETIAPINE. [Suspect]
     Active Substance: QUETIAPINE
     Indication: MAJOR DEPRESSION
     Route: 048
     Dates: start: 201711
  3. ISENTRESS [Suspect]
     Active Substance: RALTEGRAVIR POTASSIUM
     Indication: HIV INFECTION
     Route: 048
     Dates: start: 20080905
  4. RITONAVIR. [Suspect]
     Active Substance: RITONAVIR
     Indication: HIV INFECTION
     Route: 048
     Dates: start: 20191011
  5. ATORVASTATINE [Suspect]
     Active Substance: ATORVASTATIN
     Indication: DYSLIPIDAEMIA
     Route: 048
     Dates: start: 201908
  6. CELSENTRI [Suspect]
     Active Substance: MARAVIROC
     Indication: HIV INFECTION
     Route: 048
     Dates: start: 20161011
  7. NALTREXONE [Suspect]
     Active Substance: NALTREXONE
     Indication: EX-DRUG ABUSER
     Route: 065
     Dates: start: 2018
  8. ENTECAVIR. [Suspect]
     Active Substance: ENTECAVIR
     Indication: HIV INFECTION
     Route: 048
     Dates: start: 20190902

REACTIONS (1)
  - Rhabdomyolysis [Recovering/Resolving]

NARRATIVE: CASE EVENT DATE: 201911
